FAERS Safety Report 8592355-1 (Version None)
Quarter: 2012Q3

REPORT INFORMATION
  Report Type: 
  Country: None (occurrence: None)
  Receive Date: 20120814
  Receipt Date: 20120808
  Transmission Date: 20120928
  Serious: Yes (Hospitalization)
  Sender: FDA-Public Use
  Company Number: CA-009507513-1207CAN009440

PATIENT

DRUGS (3)
  1. RIBAVIRIN [Suspect]
     Indication: PRODUCT USED FOR UNKNOWN INDICATION
     Dosage: 600MG QAM, QPM PO
     Route: 048
     Dates: start: 20120509, end: 20120725
  2. VICTRELIS [Suspect]
     Indication: PRODUCT USED FOR UNKNOWN INDICATION
     Dosage: 800 MICROGRAM, TID
     Dates: start: 20120609, end: 20120725
  3. PEGINTERFERON ALFA-2B [Suspect]
     Indication: PRODUCT USED FOR UNKNOWN INDICATION
     Dosage: 120 MICROGRAM, QW
     Route: 058
     Dates: start: 20120509, end: 20120725

REACTIONS (4)
  - NEUTROPENIA [None]
  - BACTERIAL SEPSIS [None]
  - OROPHARYNGEAL PAIN [None]
  - PYREXIA [None]
